FAERS Safety Report 7508213-7 (Version None)
Quarter: 2011Q2

REPORT INFORMATION
  Report Type: 
  Country: None (occurrence: None)
  Receive Date: 20110527
  Receipt Date: 20110524
  Transmission Date: 20111010
  Serious: Yes (Hospitalization)
  Sender: FDA-Public Use
  Company Number: VE-ABBOTT-11P-178-0719617-00

PATIENT
  Age: 55 Year
  Sex: Female

DRUGS (3)
  1. ENALAPRIL MALEATE [Concomitant]
     Indication: HYPERTENSION
     Route: 048
  2. HUMIRA [Suspect]
     Indication: RHEUMATOID ARTHRITIS
     Route: 058
     Dates: start: 20080101, end: 20100101
  3. HUMIRA [Suspect]
     Route: 058
     Dates: start: 20110101, end: 20110301

REACTIONS (6)
  - HEPATITIS [None]
  - ORAL PAPILLOMA [None]
  - PAIN [None]
  - NASOPHARYNGITIS [None]
  - DRUG INEFFECTIVE [None]
  - ARTHRITIS [None]
